FAERS Safety Report 15318010 (Version 2)
Quarter: 2018Q3

REPORT INFORMATION
  Report Type: Report from Study
  Country: CO (occurrence: CO)
  Receive Date: 20180824
  Receipt Date: 20180926
  Transmission Date: 20181010
  Serious: Yes (Death, Hospitalization)
  Sender: FDA-Public Use
  Company Number: PHHY2018CO078716

PATIENT
  Sex: Female

DRUGS (1)
  1. AFINITOR [Suspect]
     Active Substance: EVEROLIMUS
     Indication: BREAST CANCER
     Dosage: 10 MG, QD
     Route: 048
     Dates: start: 201711, end: 201807

REACTIONS (8)
  - Breath odour [Unknown]
  - Respiratory failure [Fatal]
  - Obstruction [Unknown]
  - Abdominal discomfort [Unknown]
  - Yellow skin [Unknown]
  - Fluid retention [Unknown]
  - Ocular icterus [Unknown]
  - General physical health deterioration [Unknown]
